FAERS Safety Report 23048831 (Version 1)
Quarter: 2023Q4

REPORT INFORMATION
  Report Type: Spontaneous
  Country: US (occurrence: US)
  Receive Date: 20231010
  Receipt Date: 20231010
  Transmission Date: 20240109
  Serious: No
  Sender: FDA-Public Use
  Company Number: US-TEVA-2023-US-2929805

PATIENT
  Age: 69 Year
  Sex: Female
  Weight: 87.54 kg

DRUGS (3)
  1. AJOVY [Suspect]
     Active Substance: FREMANEZUMAB-VFRM
     Indication: Occipital neuralgia
     Dosage: MONTHLY, 225/1.5 MG/ML, STARTED 3-4 YEARS AGO
     Route: 065
     Dates: end: 20230811
  2. AJOVY [Suspect]
     Active Substance: FREMANEZUMAB-VFRM
  3. IMITREX [Concomitant]
     Active Substance: SUMATRIPTAN SUCCINATE
     Indication: Product used for unknown indication

REACTIONS (6)
  - Cluster headache [Not Recovered/Not Resolved]
  - Oropharyngeal pain [Unknown]
  - Malaise [Unknown]
  - Sinusitis [Unknown]
  - Product dose omission issue [Unknown]
  - Product use in unapproved indication [Unknown]

NARRATIVE: CASE EVENT DATE: 20230811
